FAERS Safety Report 5969957-1 (Version None)
Quarter: 2008Q4

REPORT INFORMATION
  Report Type: 
  Country: None (occurrence: None)
  Receive Date: 20081126
  Receipt Date: 20081020
  Transmission Date: 20090506
  Serious: No
  Sender: FDA-Public Use
  Company Number: US-ABBOTT-08P-163-0480159-00

PATIENT
  Sex: Female
  Weight: 59.02 kg

DRUGS (6)
  1. SIMCOR [Suspect]
     Indication: BLOOD CHOLESTEROL INCREASED
     Dosage: 500/20 MG
     Route: 048
     Dates: start: 20080901, end: 20081004
  2. ACETYLSALICYLIC ACID SRT [Concomitant]
     Indication: PROPHYLAXIS
     Route: 048
     Dates: start: 20080901
  3. AMLODIPINE W/VALSARTAN [Concomitant]
     Indication: HYPERTENSION
     Dosage: 10/160MG DAILY
     Route: 048
  4. LOVASA [Concomitant]
     Indication: BLOOD CHOLESTEROL INCREASED
     Dosage: 2 CAPSULES EVERY AM; 2 CAPSULES EVERY PM
     Route: 048
  5. IBANDRONATE SODIUM [Concomitant]
     Indication: OSTEOPOROSIS
     Route: 048
  6. ESCITALOPRAM OXALATE [Concomitant]
     Indication: PANIC ATTACK
     Dosage: 10 MG DAILY
     Route: 048

REACTIONS (6)
  - FLUSHING [None]
  - HEART RATE INCREASED [None]
  - INSOMNIA [None]
  - MALAISE [None]
  - PARAESTHESIA [None]
  - PRURITUS [None]
